FAERS Safety Report 17559788 (Version 1)
Quarter: 2020Q1

REPORT INFORMATION
  Report Type: Spontaneous
  Country: US (occurrence: US)
  Receive Date: 20200311
  Receipt Date: 20200311
  Transmission Date: 20200409
  Serious: Yes (Hospitalization, Other)
  Sender: FDA-Public Use
  Company Number: None

PATIENT
  Sex: Female

DRUGS (1)
  1. REBIF REBIDOSE [Suspect]
     Active Substance: INTERFERON BETA-1A
     Indication: MULTIPLE SCLEROSIS
     Dosage: ?          OTHER STRENGTH:SERONO25 MCG/0.5ML;?
     Route: 058
     Dates: start: 20070214

REACTIONS (6)
  - Fracture [None]
  - Chest pain [None]
  - Fall [None]
  - Depression [None]
  - Muscle twitching [None]
  - Myopathy [None]
